FAERS Safety Report 5853372-5 (Version None)
Quarter: 2008Q3

REPORT INFORMATION
  Report Type: 
  Country: None (occurrence: None)
  Receive Date: 20080821
  Receipt Date: 20080813
  Transmission Date: 20090109
  Serious: Yes (Other)
  Sender: FDA-Public Use
  Company Number: US-GILEAD-2008-0017784

PATIENT
  Sex: Female

DRUGS (2)
  1. ATRIPLA [Suspect]
  2. METHYLERGONOVINE [Concomitant]

REACTIONS (1)
  - ABORTION [None]
